FAERS Safety Report 11616046 (Version 1)
Quarter: 2015Q4

REPORT INFORMATION
  Report Type: Spontaneous
  Country: GB (occurrence: GB)
  Receive Date: 20151009
  Receipt Date: 20151009
  Transmission Date: 20160304
  Serious: Yes (Other)
  Sender: FDA-Public Use
  Company Number: PHFR2015GB007423

PATIENT
  Sex: Male

DRUGS (1)
  1. ZOMETA [Suspect]
     Active Substance: ZOLEDRONIC ACID
     Indication: PRODUCT USED FOR UNKNOWN INDICATION
     Dosage: 3.3 MG/ 4.125 ML IN 100 ML NORMAL SALINE, UNK
     Route: 065

REACTIONS (3)
  - Eye disorder [Unknown]
  - Heart valve incompetence [Unknown]
  - Pain in extremity [Unknown]
